FAERS Safety Report 20176519 (Version 2)
Quarter: 2022Q1

REPORT INFORMATION
  Report Type: Spontaneous
  Country: AU (occurrence: AU)
  Receive Date: 20211213
  Receipt Date: 20220211
  Transmission Date: 20220424
  Serious: Yes (Hospitalization)
  Sender: FDA-Public Use
  Company Number: AU-ALLERGAN-2141865US

PATIENT
  Sex: Female

DRUGS (1)
  1. BOTOX [Suspect]
     Active Substance: ONABOTULINUMTOXINA
     Indication: Skin wrinkling
     Dosage: 26 UNITS, SINGLE

REACTIONS (5)
  - Panic attack [Unknown]
  - Tachycardia [Unknown]
  - Stress [Unknown]
  - Presyncope [Unknown]
  - Off label use [Unknown]
